FAERS Safety Report 20159008 (Version 1)
Quarter: 2021Q4

REPORT INFORMATION
  Report Type: Report from Study
  Country: BR (occurrence: BR)
  Receive Date: 20211208
  Receipt Date: 20211208
  Transmission Date: 20220303
  Serious: Yes (Other)
  Sender: FDA-Public Use
  Company Number: BR-TAKEDA-2021TUS076416

PATIENT
  Sex: Male
  Weight: 85 kg

DRUGS (1)
  1. HUMAN IMMUNOGLOBULIN G\HYALURONIDASE RECOMBINANT HUMAN [Suspect]
     Active Substance: HUMAN IMMUNOGLOBULIN G\HYALURONIDASE RECOMBINANT HUMAN
     Indication: Primary immunodeficiency syndrome
     Dosage: 500 MILLILITER, FORNIGHTLY AND THEN MONTHLY
     Route: 058

REACTIONS (5)
  - Neoplasm malignant [Unknown]
  - Pneumonia [Unknown]
  - Drug ineffective [Unknown]
  - Weight decreased [Unknown]
  - Condition aggravated [Unknown]
